FAERS Safety Report 11513109 (Version 1)
Quarter: 2015Q3

REPORT INFORMATION
  Report Type: Spontaneous
  Country: FR (occurrence: FR)
  Receive Date: 20150916
  Receipt Date: 20150916
  Transmission Date: 20151125
  Serious: Yes (Hospitalization)
  Sender: FDA-Public Use
  Company Number: FR-GE HEALTHCARE MEDICAL DIAGNOSTICS-OMPQ-PR-1509S-1786

PATIENT
  Age: 79 Year
  Sex: Male

DRUGS (15)
  1. OMNIPAQUE [Suspect]
     Active Substance: IOHEXOL
     Indication: FAECAL VOMITING
  2. OMNIPAQUE [Suspect]
     Active Substance: IOHEXOL
     Indication: CONSTIPATION
  3. OXEOL [Concomitant]
  4. ZYMAD [Concomitant]
     Active Substance: CHOLECALCIFEROL
  5. OMNIPAQUE [Suspect]
     Active Substance: IOHEXOL
     Indication: DIAGNOSTIC PROCEDURE
  6. FUROSEMIDE. [Concomitant]
     Active Substance: FUROSEMIDE
  7. GLYCEROL\PARAFFIN [Concomitant]
     Active Substance: GLYCERIN\PARAFFIN
  8. MACROGOL [Concomitant]
     Active Substance: POLYETHYLENE GLYCOLS
  9. HEMIGOXINE [Concomitant]
     Active Substance: DIGOXIN
  10. DIFFU K [Concomitant]
     Active Substance: POTASSIUM CHLORIDE
  11. MONTELUKAST [Concomitant]
     Active Substance: MONTELUKAST SODIUM
  12. ESOMEPRAZOLE [Concomitant]
     Active Substance: ESOMEPRAZOLE
  13. OMNIPAQUE [Suspect]
     Active Substance: IOHEXOL
     Indication: INTESTINAL OBSTRUCTION
     Dosage: DOSE NOT REPORTED
     Route: 065
     Dates: start: 20150801, end: 20150801
  14. COUMADINE [Concomitant]
     Active Substance: WARFARIN SODIUM
  15. FORTIMEL [Concomitant]
     Active Substance: DIETARY SUPPLEMENT

REACTIONS (1)
  - Acute generalised exanthematous pustulosis [Recovered/Resolved]

NARRATIVE: CASE EVENT DATE: 20150802
